FAERS Safety Report 17840069 (Version 1)
Quarter: 2020Q2

REPORT INFORMATION
  Report Type: Spontaneous
  Country: US (occurrence: US)
  Receive Date: 20200529
  Receipt Date: 20200529
  Transmission Date: 20200714
  Serious: Yes (Life-Threatening, Hospitalization)
  Sender: FDA-Public Use
  Company Number: None

PATIENT
  Age: 47 Year
  Sex: Male

DRUGS (10)
  1. LACTULOSE. [Concomitant]
     Active Substance: LACTULOSE
  2. LORAZEPAM. [Concomitant]
     Active Substance: LORAZEPAM
  3. POLYETHYLENE GLYCOL [Concomitant]
     Active Substance: POLYETHYLENE GLYCOLS
  4. METOPROLOL. [Concomitant]
     Active Substance: METOPROLOL
  5. TAMSULOSIN [Concomitant]
     Active Substance: TAMSULOSIN
  6. CLOZAPINE. [Suspect]
     Active Substance: CLOZAPINE
     Indication: SCHIZOPHRENIA
     Route: 048
  7. TOUJEO [Concomitant]
     Active Substance: INSULIN GLARGINE
  8. LINIOPRIL [Concomitant]
  9. DOCUSATE/SENNA [Concomitant]
     Active Substance: DOCUSATE SODIUM\SENNA LEAF
  10. APIDRA [Concomitant]
     Active Substance: INSULIN GLULISINE

REACTIONS (17)
  - Blood glucose increased [None]
  - Malaise [None]
  - Acute respiratory failure [None]
  - Mental status changes [None]
  - Dizziness [None]
  - Pyrexia [None]
  - Type 1 diabetes mellitus [None]
  - Tremor [None]
  - Asthenia [None]
  - Ileus [None]
  - Dehydration [None]
  - Ammonia increased [None]
  - Pneumonia [None]
  - Influenza [None]
  - Sepsis [None]
  - Eye movement disorder [None]
  - Small intestinal obstruction [None]

NARRATIVE: CASE EVENT DATE: 20200224
